FAERS Safety Report 6898232-6 (Version None)
Quarter: 2010Q3

REPORT INFORMATION
  Report Type: 
  Country: None (occurrence: None)
  Receive Date: 20100802
  Receipt Date: 20070918
  Transmission Date: 20110219
  Serious: Yes (Other)
  Sender: FDA-Public Use
  Company Number: US-PFIZER INC-2007078614

PATIENT
  Sex: Male
  Weight: 101.6 kg

DRUGS (4)
  1. LYRICA [Suspect]
     Indication: DIABETIC NEUROPATHY
     Dates: start: 20070101
  2. LIPITOR [Suspect]
     Indication: BLOOD CHOLESTEROL INCREASED
  3. INSULIN [Concomitant]
  4. METFORMIN HCL [Concomitant]

REACTIONS (4)
  - DEPRESSION [None]
  - MOOD SWINGS [None]
  - NIGHTMARE [None]
  - WEIGHT INCREASED [None]
